FAERS Safety Report 5694762-3 (Version None)
Quarter: 2008Q2

REPORT INFORMATION
  Report Type: 
  Country: None (occurrence: None)
  Receive Date: 20080404
  Receipt Date: 20080401
  Transmission Date: 20081010
  Serious: No
  Sender: FDA-Public Use
  Company Number: DE-JNJFOC-20080400182

PATIENT

DRUGS (1)
  1. RISPERDAL [Suspect]
     Indication: IMPULSE-CONTROL DISORDER
     Route: 048

REACTIONS (2)
  - FEBRILE INFECTION [None]
  - LEUKOPENIA [None]
